FAERS Safety Report 5096482-5 (Version None)
Quarter: 2006Q3

REPORT INFORMATION
  Report Type: 
  Country: None (occurrence: None)
  Receive Date: 20060905
  Receipt Date: 20060823
  Transmission Date: 20061208
  Serious: Yes (Other)
  Sender: FDA-Public Use
  Company Number: PHFR2006GB02648

PATIENT
  Sex: Female

DRUGS (2)
  1. ESTRADERM [Suspect]
     Indication: HORMONE REPLACEMENT THERAPY
     Dosage: 50MG DAILY
     Route: 062
  2. ESTRADERM [Suspect]
     Dosage: 100MG DAILY
     Route: 062

REACTIONS (3)
  - BLOOD OESTROGEN DECREASED [None]
  - FIBROMYALGIA [None]
  - OSTEOPOROSIS [None]
